FAERS Safety Report 7493459-7 (Version None)
Quarter: 2011Q2

REPORT INFORMATION
  Report Type: 
  Country: None (occurrence: None)
  Receive Date: 20110519
  Receipt Date: 20110519
  Transmission Date: 20111010
  Serious: Yes (Hospitalization)
  Sender: FDA-Public Use
  Company Number: None

PATIENT
  Sex: Male
  Weight: 71.6683 kg

DRUGS (11)
  1. SIMVASTATIN [Concomitant]
  2. LEVOTHYROXINE SODIUM [Concomitant]
  3. DIOVAN [Concomitant]
  4. NIFEDIPINE [Concomitant]
  5. RAMBIZUMAB 0.5MG GENENTECH [Suspect]
     Indication: MACULAR DEGENERATION
     Dosage: 0.05 ML Q4W IVT
     Route: 042
     Dates: start: 20100922
  6. RAMBIZUMAB 0.5MG GENENTECH [Suspect]
     Indication: MACULAR DEGENERATION
     Dosage: 0.05 ML Q4W IVT
     Route: 042
     Dates: start: 20101119
  7. RAMBIZUMAB 0.5MG GENENTECH [Suspect]
     Indication: MACULAR DEGENERATION
     Dosage: 0.05 ML Q4W IVT
     Route: 042
     Dates: start: 20101025
  8. PROBEN [Concomitant]
  9. AMLODIPINE [Concomitant]
  10. WARFARIN SODIUM [Concomitant]
  11. FUROSEMIDE [Concomitant]

REACTIONS (1)
  - UNEVALUABLE EVENT [None]
